FAERS Safety Report 8576410-8 (Version None)
Quarter: 2012Q3

REPORT INFORMATION
  Report Type: 
  Country: None (occurrence: None)
  Receive Date: 20120807
  Receipt Date: 20120730
  Transmission Date: 20120928
  Serious: Yes (Other)
  Sender: FDA-Public Use
  Company Number: US-BAYER-2012-001368

PATIENT
  Age: 76 Year
  Sex: Female
  Weight: 56.236 kg

DRUGS (5)
  1. NEXAVAR [Suspect]
     Dosage: DAILY DOSE 800 MG
     Route: 048
  2. NEXAVAR [Suspect]
     Indication: HEPATIC NEOPLASM MALIGNANT
     Dosage: 400 MG, BID
     Route: 048
     Dates: start: 20111020, end: 20110101
  3. NEXAVAR [Suspect]
     Dosage: UNK
     Route: 048
  4. NEXAVAR [Suspect]
     Dosage: 400 MG, QD
     Dates: start: 20111101
  5. NEXAVAR [Suspect]
     Dosage: 400 MG, BID
     Route: 048
     Dates: start: 20110101, end: 20110101

REACTIONS (6)
  - MALAISE [None]
  - HYPERAESTHESIA [None]
  - ADVERSE DRUG REACTION [None]
  - GLOSSODYNIA [None]
  - MOUTH ULCERATION [None]
  - ABASIA [None]
